FAERS Safety Report 23449380 (Version 7)
Quarter: 2024Q4

REPORT INFORMATION
  Report Type: Spontaneous
  Country: US (occurrence: US)
  Receive Date: 20240129
  Receipt Date: 20241010
  Transmission Date: 20250114
  Serious: No
  Sender: GLAXOSMITHKLINE
  Company Number: US-GLAXOSMITHKLINE-US2024010077

PATIENT
  Age: 78 Year
  Sex: Female

DRUGS (4)
  1. ZEJULA [Suspect]
     Active Substance: NIRAPARIB
     Indication: Metastases to lung
     Dosage: 100 MG, QD
     Route: 048
     Dates: start: 20240109
  2. ZEJULA [Suspect]
     Active Substance: NIRAPARIB
     Dosage: 100 MG, QD
     Route: 048
  3. ZEJULA [Suspect]
     Active Substance: NIRAPARIB
     Dosage: 100 MG, QD
  4. ZEJULA [Suspect]
     Active Substance: NIRAPARIB
     Dosage: 100 MG, QD

REACTIONS (11)
  - Blood pressure increased [Unknown]
  - Middle insomnia [Unknown]
  - Fatigue [Recovered/Resolved]
  - Hepatic enzyme increased [Unknown]
  - Blood creatine increased [Unknown]
  - Onychomadesis [Unknown]
  - Hair growth abnormal [Unknown]
  - Constipation [Unknown]
  - Arthralgia [Unknown]
  - Product use in unapproved indication [Unknown]
  - Product dose omission issue [Unknown]

NARRATIVE: CASE EVENT DATE: 20240101
